FAERS Safety Report 16159408 (Version 1)
Quarter: 2019Q2

REPORT INFORMATION
  Report Type: Spontaneous
  Country: US (occurrence: US)
  Receive Date: 20190301
  Receipt Date: 20190301
  Transmission Date: 20190711
  Serious: No
  Sender: FDA-Public Use
  Company Number: None

PATIENT

DRUGS (1)
  1. XIFAXAN [Suspect]
     Active Substance: RIFAXIMIN
     Dosage: ?          QUANTITY:550 MG MILLIGRAM(S);?
     Route: 048
     Dates: start: 20190206

REACTIONS (2)
  - Ear pain [None]
  - Dizziness [None]

NARRATIVE: CASE EVENT DATE: 20190301
